FAERS Safety Report 8578797-9 (Version None)
Quarter: 2012Q3

REPORT INFORMATION
  Report Type: 
  Country: None (occurrence: None)
  Receive Date: 20120808
  Receipt Date: 20120731
  Transmission Date: 20120928
  Serious: No
  Sender: FDA-Public Use
  Company Number: US-PFIZER INC-2012185883

PATIENT
  Age: 62 Year
  Sex: Female
  Weight: 77.098 kg

DRUGS (5)
  1. OXYCONTIN [Concomitant]
     Indication: BACK PAIN
     Dosage: 10 MG, 2X/DAY
     Dates: start: 19950101
  2. LYRICA [Suspect]
     Dosage: 100 MG, 3X/DAY
     Route: 048
     Dates: start: 20120101
  3. LYRICA [Suspect]
     Dosage: UNK
     Route: 048
     Dates: start: 20120701
  4. LYRICA [Suspect]
     Indication: BACK PAIN
     Dosage: 50 MG, 3X/DAY
     Route: 048
     Dates: start: 20120612
  5. OXYCODONE [Concomitant]
     Indication: BACK PAIN
     Dosage: 15 MG, 4X/DAY

REACTIONS (2)
  - WEIGHT INCREASED [None]
  - DRUG INEFFECTIVE [None]
